FAERS Safety Report 21433391 (Version 1)
Quarter: 2022Q4

REPORT INFORMATION
  Report Type: Spontaneous
  Country: TR (occurrence: TR)
  Receive Date: 20221010
  Receipt Date: 20221010
  Transmission Date: 20230113
  Serious: No
  Sender: FDA-Public Use
  Company Number: TR-ALKEM LABORATORIES LIMITED-TR-ALKEM-2022-08223

PATIENT
  Age: 8 Year
  Sex: Female

DRUGS (2)
  1. SIROLIMUS [Suspect]
     Active Substance: SIROLIMUS
     Indication: Lymphangioma
     Dosage: 0.75 MILLIGRAM PER MILLILITRE, BID
     Route: 061
  2. SIROLIMUS [Suspect]
     Active Substance: SIROLIMUS
     Dosage: 0.75 MILLIGRAM PER MILLILITRE, QD
     Route: 061

REACTIONS (1)
  - Skin irritation [Recovered/Resolved]
